FAERS Safety Report 5356660-4 (Version None)
Quarter: 2007Q2

REPORT INFORMATION
  Report Type: 
  Country: None (occurrence: None)
  Receive Date: 20070530
  Receipt Date: 20061106
  Transmission Date: 20071010
  Serious: Yes (Other)
  Sender: FDA-Public Use
  Company Number: US200608005729

PATIENT
  Age: 45 Year
  Sex: Female
  Weight: 99.8 kg

DRUGS (7)
  1. ZYPREXA [Suspect]
     Dates: start: 20050101, end: 20060101
  2. SEROQUEL /UNK/ (QUETIAPINE FUMARATE) [Concomitant]
  3. RISPERDAL /SWE/ (RISPERIDONE) [Concomitant]
  4. GEODON [Concomitant]
  5. DEPAKOTE [Concomitant]
  6. PROZAC [Concomitant]
  7. ZOLOFT [Concomitant]

REACTIONS (6)
  - BLOOD CHOLESTEROL INCREASED [None]
  - DIABETES MELLITUS [None]
  - DIABETIC KETOACIDOSIS [None]
  - HYPERTENSION [None]
  - METABOLIC DISORDER [None]
  - OBESITY [None]
